FAERS Safety Report 6646866-6 (Version None)
Quarter: 2010Q1

REPORT INFORMATION
  Report Type: 
  Country: None (occurrence: None)
  Receive Date: 20100323
  Receipt Date: 20100311
  Transmission Date: 20100710
  Serious: Yes (Other)
  Sender: FDA-Public Use
  Company Number: US-PFIZER INC-2007105594

PATIENT
  Sex: Male
  Weight: 93 kg

DRUGS (7)
  1. CAVERJECT IMPULSE [Suspect]
     Indication: ERECTILE DYSFUNCTION
     Dosage: UNK
     Dates: start: 20070101
  2. VIAGRA [Suspect]
     Dosage: UNK
  3. TAMSULOSIN [Concomitant]
  4. NORVASC [Concomitant]
     Dosage: UNK
  5. SPIRONOLACTONE [Concomitant]
     Dosage: UNK
  6. VYTORIN [Concomitant]
  7. NEXIUM [Concomitant]

REACTIONS (9)
  - BLOOD TESTOSTERONE ABNORMAL [None]
  - DEVICE MALFUNCTION [None]
  - DRUG INEFFECTIVE [None]
  - INTERVERTEBRAL DISC OPERATION [None]
  - PENILE DISCHARGE [None]
  - TESTICULAR PAIN [None]
  - URETHRAL HAEMORRHAGE [None]
  - URETHRAL INJURY [None]
  - WRONG TECHNIQUE IN DRUG USAGE PROCESS [None]
